FAERS Safety Report 5935393-7 (Version None)
Quarter: 2008Q4

REPORT INFORMATION
  Report Type: 
  Country: None (occurrence: None)
  Receive Date: 20081028
  Receipt Date: 20081020
  Transmission Date: 20090506
  Serious: Yes (Hospitalization)
  Sender: FDA-Public Use
  Company Number: 2008AP002811

PATIENT
  Age: 64 Year
  Sex: Female

DRUGS (7)
  1. ALENDRONATE SODIUM [Suspect]
     Indication: OSTEOPOROSIS
     Dosage: 70 MG; QW PO
     Route: 048
     Dates: start: 20070101
  2. RISEDRONIC ACID (RISEDRONIC ACID) [Suspect]
     Indication: OSTEOPOROSIS
     Dosage: 35 MG; QW PO
     Route: 048
     Dates: start: 20050101, end: 20070101
  3. CALCIUM CARBONATE (CALCIUM CARBONATE) [Concomitant]
  4. COLECALCIFEROL (COLECALCIFEROL) [Concomitant]
  5. CODEINE PHOSPHATE (CODEINE PHOSPHATE) [Concomitant]
  6. ACETAMINOPHEN [Concomitant]
  7. GLUCOSAMINE (GLUCOSAMINE) [Concomitant]

REACTIONS (1)
  - ATRIAL FIBRILLATION [None]
